FAERS Safety Report 5121339-0 (Version None)
Quarter: 2006Q4

REPORT INFORMATION
  Report Type: 
  Country: None (occurrence: None)
  Receive Date: 20061002
  Receipt Date: 20060919
  Transmission Date: 20070319
  Serious: Yes (Other)
  Sender: FDA-Public Use
  Company Number: B0439361A

PATIENT
  Age: 70 Year
  Sex: Male

DRUGS (1)
  1. LEUKERAN [Suspect]
     Indication: NON-HODGKIN'S LYMPHOMA
     Dosage: 24 MG / PER DAY / ORAL
     Route: 048

REACTIONS (1)
  - GRAND MAL CONVULSION [None]
